FAERS Safety Report 4866941-6 (Version None)
Quarter: 2005Q4

REPORT INFORMATION
  Report Type: 
  Country: None (occurrence: None)
  Receive Date: 20051222
  Receipt Date: 20051209
  Transmission Date: 20060501
  Serious: Yes (Hospitalization)
  Sender: FDA-Public Use
  Company Number: OMPQ-NO-0512S-1479

PATIENT
  Age: 66 Year
  Sex: Male
  Weight: 64.5 kg

DRUGS (9)
  1. OMNIPAQUE 140 [Suspect]
     Indication: METASTASES TO LYMPH NODES
     Dosage: 98 ML, SINGLE DOSE, I.V.
     Route: 042
     Dates: start: 20051201, end: 20051201
  2. OMNIPAQUE 140 [Suspect]
     Indication: OESOPHAGEAL CARCINOMA
     Dosage: 98 ML, SINGLE DOSE, I.V.
     Route: 042
     Dates: start: 20051201, end: 20051201
  3. POVIDONE-IODINE                            (ISODINE GARGLE) [Concomitant]
  4. SUCRALFATE              (ULCERMIN) [Concomitant]
  5. CAMOSTAT MESILATE                 (FOIPAN) [Concomitant]
  6. URSODEOXYCHOLIC ACID                           (URSO) [Concomitant]
  7. LANSOPRAZOLE [Concomitant]
  8. NEDAPLATIN      (AQUPLA) [Concomitant]
  9. FLUOROURACIL [Concomitant]

REACTIONS (2)
  - ANAPHYLACTOID SHOCK [None]
  - POST PROCEDURAL COMPLICATION [None]
